FAERS Safety Report 9796027 (Version 3)
Quarter: 2014Q1

REPORT INFORMATION
  Report Type: Spontaneous
  Country: CA (occurrence: CA)
  Receive Date: 20140103
  Receipt Date: 20140117
  Transmission Date: 20141002
  Serious: Yes (Other)
  Sender: FDA-Public Use
  Company Number: CA-ELI_LILLY_AND_COMPANY-CA201310010514

PATIENT
  Age: 39 Year
  Sex: Female

DRUGS (6)
  1. CYMBALTA [Suspect]
     Indication: DEPRESSION
     Dosage: 60 MG, QD
     Route: 048
     Dates: start: 201307, end: 20130830
  2. CYMBALTA [Suspect]
     Indication: ANXIETY
  3. CYMBALTA [Suspect]
     Indication: FIBROMYALGIA
  4. CLONAZEPAM [Concomitant]
     Indication: PRODUCT USED FOR UNKNOWN INDICATION
     Dosage: UNK, PRN
     Route: 065
  5. GABAPENTIN [Concomitant]
     Indication: PAIN MANAGEMENT
     Dosage: 600 MG, QD
     Route: 065
  6. ZOPICLONE [Concomitant]
     Indication: SLEEP DISORDER
     Dosage: 3.75 MG, EACH EVENING
     Route: 065

REACTIONS (11)
  - Loss of consciousness [Unknown]
  - Psychogenic seizure [Recovered/Resolved with Sequelae]
  - Eye movement disorder [Unknown]
  - Visual field defect [Not Recovered/Not Resolved]
  - Trichotillomania [Unknown]
  - Head titubation [Unknown]
  - Crying [Unknown]
  - Incontinence [Unknown]
  - Headache [Unknown]
  - Dizziness [Unknown]
  - Disturbance in attention [Not Recovered/Not Resolved]
